FAERS Safety Report 5155327-5 (Version None)
Quarter: 2006Q4

REPORT INFORMATION
  Report Type: 
  Country: None (occurrence: None)
  Receive Date: 20061121
  Receipt Date: 20060908
  Transmission Date: 20070319
  Serious: Yes (Other)
  Sender: FDA-Public Use
  Company Number: US-ROCHE-462782

PATIENT
  Age: 59 Year
  Sex: Female
  Weight: 61.2 kg

DRUGS (3)
  1. BONIVA [Suspect]
     Route: 048
     Dates: start: 20060413
  2. PREDNISONE TAB [Concomitant]
     Indication: POLYMYOSITIS
  3. LEVOTHYROXINE SODIUM [Concomitant]
     Indication: THYROID DISORDER

REACTIONS (2)
  - MUSCULAR WEAKNESS [None]
  - RESPIRATORY DISORDER [None]
